FAERS Safety Report 8338240-1 (Version None)
Quarter: 2012Q2

REPORT INFORMATION
  Report Type: 
  Country: None (occurrence: None)
  Receive Date: 20120504
  Receipt Date: 20120427
  Transmission Date: 20120825
  Serious: Yes (Life-Threatening, Hospitalization)
  Sender: FDA-Public Use
  Company Number: JP-MERCK-1204USA02795

PATIENT
  Age: 53 Year
  Sex: Male
  Weight: 82 kg

DRUGS (12)
  1. LANTUS [Concomitant]
     Route: 058
     Dates: start: 20120330
  2. HUMALOG [Concomitant]
     Route: 058
     Dates: start: 20120330
  3. LYRICA [Concomitant]
     Route: 048
  4. DIGOXIN [Concomitant]
     Route: 048
  5. LANTUS [Concomitant]
     Route: 058
     Dates: end: 20120329
  6. METFORMIN HCL [Concomitant]
     Route: 048
     Dates: start: 20120105
  7. KINEDAK [Concomitant]
     Route: 048
  8. LENDORMIN [Concomitant]
     Route: 048
  9. WARFARIN [Concomitant]
     Route: 048
  10. JANUVIA [Suspect]
     Route: 048
     Dates: start: 20120329, end: 20120414
  11. SENNARIDE [Concomitant]
     Route: 048
  12. HUMALOG [Concomitant]
     Route: 058
     Dates: end: 20120329

REACTIONS (2)
  - BLOOD GLUCOSE ABNORMAL [None]
  - HYPOGLYCAEMIA [None]
